FAERS Safety Report 14819176 (Version 1)
Quarter: 2018Q2

REPORT INFORMATION
  Report Type: Spontaneous
  Country: GB (occurrence: GB)
  Receive Date: 20180427
  Receipt Date: 20180427
  Transmission Date: 20180711
  Serious: Yes (Life-Threatening, Hospitalization)
  Sender: FDA-Public Use
  Company Number: GB-AUROBINDO-AUR-APL-2018-022210

PATIENT
  Age: 29 Year
  Sex: Female

DRUGS (18)
  1. KETAMINE [Suspect]
     Active Substance: KETAMINE
     Indication: ASTHMA
     Dosage: UNK
     Route: 042
  2. EPINEPHRINE. [Suspect]
     Active Substance: EPINEPHRINE
     Dosage: UNK
     Route: 065
  3. THEOPHYLLINE [Suspect]
     Active Substance: THEOPHYLLINE ANHYDROUS
     Indication: ASTHMA
     Dosage: UNK
     Route: 065
  4. SEVOFLURANE. [Suspect]
     Active Substance: SEVOFLURANE
     Indication: ASTHMA
     Dosage: 8 PERCENT
     Route: 055
  5. MONTELUKAST [Suspect]
     Active Substance: MONTELUKAST SODIUM
     Indication: ASTHMA
     Dosage: UNK
     Route: 065
  6. SALBUTAMOL [Suspect]
     Active Substance: ALBUTEROL
     Dosage: 15 MILLIGRAM, NEBULISER : IN REPEATED DOSES
     Route: 065
  7. IPRATROPIUM BROMIDE. [Suspect]
     Active Substance: IPRATROPIUM BROMIDE
     Dosage: 0.5 MILLIGRAM, NEBULISATION
     Route: 065
  8. HYDROCORTISONE. [Suspect]
     Active Substance: HYDROCORTISONE
     Indication: ASTHMA
     Dosage: 100 MILLIGRAM
     Route: 042
  9. SALBUTAMOL [Suspect]
     Active Substance: ALBUTEROL
     Dosage: UNK, NEBULISER
     Route: 065
  10. SALBUTAMOL [Suspect]
     Active Substance: ALBUTEROL
     Dosage: 15 MILLIGRAM, NEBULISATION
     Route: 065
  11. KETAMINE [Suspect]
     Active Substance: KETAMINE
     Dosage: UNK, INCREASED TO 45 MICROG/KG/MIN
     Route: 042
  12. MAGNESIUM SULFATE. [Suspect]
     Active Substance: MAGNESIUM SULFATE
     Indication: ASTHMA
     Dosage: 2 GRAM
     Route: 042
  13. SALBUTAMOL [Suspect]
     Active Substance: ALBUTEROL
     Indication: ASTHMA
     Dosage: 250 MICROGRAM, 2 BOLUSES
     Route: 040
  14. EPINEPHRINE. [Suspect]
     Active Substance: EPINEPHRINE
     Indication: ASTHMA
     Dosage: 350 MICROGRAM, DILUTED IN SMALL INCREMENTS
     Route: 065
  15. MONTELUKAST [Concomitant]
     Active Substance: MONTELUKAST SODIUM
     Indication: ASTHMA
     Dosage: UNK
     Route: 065
  16. IPRATROPIUM BROMIDE. [Suspect]
     Active Substance: IPRATROPIUM BROMIDE
     Indication: ASTHMA
     Dosage: 0.5 MILLIGRAM
     Route: 065
  17. PREDNISOLONE. [Suspect]
     Active Substance: PREDNISOLONE
     Indication: ASTHMA
     Dosage: 30 MILLIGRAM
     Route: 065
  18. SALBUTAMOL [Suspect]
     Active Substance: ALBUTEROL
     Dosage: 12.3 MILLIGRAM
     Route: 042

REACTIONS (18)
  - Wheezing [Recovering/Resolving]
  - PO2 decreased [Recovering/Resolving]
  - Blood lactic acid increased [Recovering/Resolving]
  - Drug ineffective [Unknown]
  - Dyspnoea [Recovering/Resolving]
  - Asthma [Recovering/Resolving]
  - Oxygen saturation decreased [Recovering/Resolving]
  - Airway peak pressure increased [Recovering/Resolving]
  - Cyanosis [Recovering/Resolving]
  - Bronchospasm [Recovering/Resolving]
  - PCO2 increased [Recovering/Resolving]
  - Lung hyperinflation [Recovering/Resolving]
  - Respiratory acidosis [Recovering/Resolving]
  - Blood pH decreased [Recovering/Resolving]
  - Respiratory rate increased [Recovering/Resolving]
  - Hypercapnia [Recovering/Resolving]
  - Off label use [Unknown]
  - Blood bicarbonate decreased [Recovering/Resolving]
